FAERS Safety Report 12407784 (Version 2)
Quarter: 2016Q2

REPORT INFORMATION
  Report Type: Spontaneous
  Country: BR (occurrence: BR)
  Receive Date: 20160526
  Receipt Date: 20160601
  Transmission Date: 20160815
  Serious: Yes (Hospitalization, Other)
  Sender: FDA-Public Use
  Company Number: BR-GLAXOSMITHKLINE-BR2016GSK075152

PATIENT
  Age: 1 Year
  Sex: Male
  Weight: 9 kg

DRUGS (1)
  1. FLIXOTIDE (CFC-FREE) [Suspect]
     Active Substance: FLUTICASONE PROPIONATE
     Indication: ASTHMA
     Dosage: 1 PUFF(S), BID
     Route: 055
     Dates: start: 20160124, end: 20160524

REACTIONS (5)
  - Drug ineffective [Unknown]
  - Fatigue [Unknown]
  - Sepsis [Unknown]
  - Pneumonia [Unknown]
  - Catarrh [Not Recovered/Not Resolved]

NARRATIVE: CASE EVENT DATE: 20160401
